FAERS Safety Report 5282480-5 (Version None)
Quarter: 2007Q1

REPORT INFORMATION
  Report Type: 
  Country: None (occurrence: None)
  Receive Date: 20070326
  Receipt Date: 20070315
  Transmission Date: 20070707
  Serious: Yes (Hospitalization)
  Sender: FDA-Public Use
  Company Number: 011593

PATIENT
  Age: 83 Year
  Sex: Female
  Weight: 49.4 kg

DRUGS (6)
  1. DESMOPRESSIN ACETATE [Suspect]
     Indication: URINARY INCONTINENCE
     Dosage: 1 TABLET, QD, ORAL
     Route: 048
     Dates: start: 20070308, end: 20070312
  2. ASPIRIN [Concomitant]
  3. SPIRIVA [Concomitant]
  4. SEREVENT [Concomitant]
  5. SYNTHROID [Concomitant]
  6. PREDNISONE TAB [Concomitant]

REACTIONS (7)
  - AMNESIA [None]
  - ANOREXIA [None]
  - BLOOD SODIUM DECREASED [None]
  - CHILLS [None]
  - GAIT DISTURBANCE [None]
  - TREMOR [None]
  - URINARY TRACT INFECTION [None]
